FAERS Safety Report 5127234-5 (Version None)
Quarter: 2006Q4

REPORT INFORMATION
  Report Type: 
  Country: None (occurrence: None)
  Receive Date: 20061010
  Receipt Date: 20060926
  Transmission Date: 20070319
  Serious: Yes (Hospitalization)
  Sender: FDA-Public Use
  Company Number: 14870

PATIENT
  Age: 77 Year
  Sex: Female

DRUGS (16)
  1. FLUOROURACIL [Suspect]
     Indication: COLON CANCER
     Dosage: 400 MG/M2; ONCE; IV
     Route: 042
     Dates: start: 20060508, end: 20060508
  2. FLUOROURACIL [Suspect]
     Indication: COLON CANCER
     Dosage: 2400 MG/M2; OTH, IV
     Route: 042
     Dates: start: 20060508, end: 20060509
  3. FLUOROURACIL [Suspect]
     Indication: COLON CANCER
     Dosage: 320 MG, M2 ONCE; IV
     Route: 042
     Dates: start: 20060703, end: 20060703
  4. FLUOROURACIL [Suspect]
     Indication: COLON CANCER
     Dosage: 1920 MG, M2; IV
     Route: 042
     Dates: start: 20060703, end: 20060703
  5. FLUOROURACIL [Suspect]
     Indication: COLON CANCER
     Dosage: 270 MG, M2 ONCE; IV
     Route: 042
     Dates: start: 20060731, end: 20060731
  6. FLUOROURACIL [Suspect]
     Indication: COLON CANCER
     Dosage: 1600 MG, M2; IV
     Route: 042
     Dates: start: 20060731, end: 20060731
  7. LEUCOVORIN CALCIUM [Suspect]
     Indication: COLON CANCER
     Dosage: 400 MG, M2 OTH, IV
     Route: 042
     Dates: start: 20060508, end: 20060508
  8. LEUCOVORIN CALCIUM [Suspect]
     Indication: COLON CANCER
     Dosage: 400 MG, M2 OTH; IV
     Route: 042
     Dates: start: 20060724, end: 20060724
  9. OXALIPLATIN [Suspect]
     Indication: COLON CANCER
     Dosage: 85 MG, M2 OTH; IV
     Route: 042
     Dates: start: 20060508, end: 20060508
  10. OXALIPLATIN [Suspect]
     Indication: COLON CANCER
     Dosage: 85 MG, M2 UNK; IV
     Route: 042
     Dates: start: 20060731, end: 20060731
  11. OXALIPLATIN [Suspect]
     Indication: COLON CANCER
     Dosage: 65 MG, M2, IV
     Route: 042
  12. OXALIPLATIN [Suspect]
     Indication: COLON CANCER
     Dosage: 50 MG, M2; IV
     Route: 042
  13. BEVACIZUMAB [Suspect]
     Indication: COLON CANCER
     Dosage: 5MG/KG, FORTNIGHTLY; IV
     Route: 042
     Dates: start: 20060508, end: 20060508
  14. BEVACIZUMAB [Suspect]
     Indication: COLON CANCER
     Dosage: 5 MG/KG FORTNIGHTLY; IV
     Route: 042
     Dates: start: 20060717, end: 20060717
  15. CETUXIMAB [Suspect]
     Indication: COLON CANCER
     Dosage: 250 MG/M2 WEEKLY, IV
     Route: 042
     Dates: start: 20060508, end: 20060508
  16. CETUXIMAB [Suspect]
     Indication: COLON CANCER
     Dosage: 250 MG, M2 WEEKLY; IV
     Route: 042
     Dates: start: 20060724, end: 20060724

REACTIONS (11)
  - CATHETER RELATED INFECTION [None]
  - COUGH [None]
  - HAEMOPTYSIS [None]
  - LUNG DISORDER [None]
  - MUCOSAL INFLAMMATION [None]
  - NEUROTOXICITY [None]
  - PLATELET COUNT DECREASED [None]
  - PNEUMOTHORAX [None]
  - PSEUDOMONAL SEPSIS [None]
  - SEPTIC EMBOLUS [None]
  - TRANSIENT ISCHAEMIC ATTACK [None]
